FAERS Safety Report 13772998 (Version 2)
Quarter: 2017Q3

REPORT INFORMATION
  Report Type: Spontaneous
  Country: US (occurrence: US)
  Receive Date: 20170720
  Receipt Date: 20170804
  Transmission Date: 20171127
  Serious: Yes (Life-Threatening, Other)
  Sender: FDA-Public Use
  Company Number: US-PFIZER INC-2017312975

PATIENT
  Age: 44 Year
  Sex: Female

DRUGS (6)
  1. ALBUMIN [Concomitant]
     Active Substance: ALBUMIN HUMAN
     Dosage: (52 ML TOTAL VOLUME)
     Dates: start: 20090414, end: 20090414
  2. CYCLOPHOSPHAMIDE. [Concomitant]
     Active Substance: CYCLOPHOSPHAMIDE
     Indication: BURKITT^S LYMPHOMA
     Dosage: UNK
  3. ALBUMIN [Concomitant]
     Active Substance: ALBUMIN HUMAN
     Indication: CORD BLOOD TRANSPLANT THERAPY
     Dosage: (TOTAL VOLUME OF 251 ML)(ALBUMIN/DEXTRAN 1:1)
     Dates: start: 20090414, end: 20090414
  4. FLUDARABINE [Concomitant]
     Active Substance: FLUDARABINE PHOSPHATE
     Indication: BURKITT^S LYMPHOMA
     Dosage: UNK
  5. DEXTRAN [Suspect]
     Active Substance: DEXTRAN
     Dosage: (52 ML TOTAL VOLUME)
     Route: 042
     Dates: start: 20090414, end: 20090414
  6. DEXTRAN [Suspect]
     Active Substance: DEXTRAN
     Indication: STEM CELL TRANSPLANT
     Dosage: (TOTAL VOLUME OF 251 ML)(ALBUMIN/DEXTRAN 1:1)
     Route: 042
     Dates: start: 20090414, end: 20090414

REACTIONS (4)
  - Renal tubular necrosis [Recovered/Resolved]
  - Cardiomyopathy [Recovered/Resolved]
  - Acute respiratory distress syndrome [Recovered/Resolved]
  - Acute kidney injury [Recovered/Resolved]
